FAERS Safety Report 11235169 (Version 2)
Quarter: 2016Q2

REPORT INFORMATION
  Report Type: Spontaneous
  Country: NO (occurrence: NO)
  Receive Date: 20150702
  Receipt Date: 20160609
  Transmission Date: 20160815
  Serious: Yes (Hospitalization, Other)
  Sender: FDA-Public Use
  Company Number: NO-009507513-1507NOR000643

PATIENT
  Age: 68 Year
  Sex: Female
  Weight: 75.5 kg

DRUGS (9)
  1. TRIOBE [Concomitant]
     Dosage: 1 DF, QD
  2. VOLTAREN [Concomitant]
     Active Substance: DICLOFENAC SODIUM
  3. CALCIGRAN [Concomitant]
     Indication: PRODUCT USED FOR UNKNOWN INDICATION
     Dosage: 1 TABLET, 6 DAYS A WEEK(STRENGTH 500 MG/400 IE)
  4. ALENDRONATE SODIUM. [Suspect]
     Active Substance: ALENDRONATE SODIUM
     Indication: OSTEOPOROSIS PROPHYLAXIS
     Dosage: 70 MG ONCE A WEEK
     Route: 048
     Dates: start: 2012, end: 2014
  5. FOSAMAX [Suspect]
     Active Substance: ALENDRONATE SODIUM
     Indication: OSTEOPOROSIS PROPHYLAXIS
     Dosage: 70 MG, QW
     Route: 048
     Dates: start: 20010219, end: 201203
  6. ALDARA [Concomitant]
     Active Substance: IMIQUIMOD
     Indication: PIGMENTATION DISORDER
     Dosage: UNK
     Route: 065
  7. ORUDIS [Concomitant]
     Active Substance: KETOPROFEN
     Indication: PRODUCT USED FOR UNKNOWN INDICATION
     Dosage: UNK
     Route: 065
  8. VOLTAREN [Concomitant]
     Active Substance: DICLOFENAC SODIUM
     Indication: PRODUCT USED FOR UNKNOWN INDICATION
     Dosage: UNK (1-2 TABLETS WHEN NEEDED)
  9. TRIOBE [Concomitant]
     Indication: PRODUCT USED FOR UNKNOWN INDICATION
     Dosage: 1 DF, QD (1 TABLET DAILY)
     Route: 065

REACTIONS (9)
  - Osteopenia [Unknown]
  - Neoplasm skin [Unknown]
  - Plastic surgery [Unknown]
  - Laboratory test abnormal [Unknown]
  - Abdominal pain [Unknown]
  - Femur fracture [Recovered/Resolved with Sequelae]
  - Abdominal discomfort [Unknown]
  - Bone pain [Recovered/Resolved with Sequelae]
  - Haemorrhagic anaemia [Recovered/Resolved]

NARRATIVE: CASE EVENT DATE: 2004
